FAERS Safety Report 8418378-0 (Version None)
Quarter: 2012Q2

REPORT INFORMATION
  Report Type: 
  Country: None (occurrence: None)
  Receive Date: 20120607
  Receipt Date: 20120606
  Transmission Date: 20120825
  Serious: Yes (Hospitalization, Disabling)
  Sender: FDA-Public Use
  Company Number: JP-PFIZER INC-2011205406

PATIENT
  Age: 77 Year
  Sex: Female
  Weight: 54 kg

DRUGS (21)
  1. FLUOROURACIL [Concomitant]
     Dosage: 2000 MG/BODY/D1-2 (1315.8 MG/M2/D1-2)
     Route: 041
     Dates: start: 20110323, end: 20110531
  2. DORIPENEM MONOHYDRATE [Concomitant]
     Dosage: UNK
     Dates: start: 20110630, end: 20110709
  3. IRINOTECAN HCL [Suspect]
     Dosage: 80 MG, 1X/DAY
     Route: 041
     Dates: start: 20110420, end: 20110420
  4. AVASTIN [Suspect]
     Dosage: 250 MG, 1X/DAY
     Route: 041
     Dates: start: 20110323, end: 20110323
  5. ZOSYN [Concomitant]
     Dosage: UNK
     Dates: start: 20110613, end: 20110620
  6. FLOMOXEF SODIUM [Concomitant]
     Dosage: UNK
     Dates: start: 20110624, end: 20110629
  7. IRINOTECAN HCL [Suspect]
     Dosage: 80 MG, 1X/DAY
     Route: 041
     Dates: start: 20110511, end: 20110511
  8. IRINOTECAN HCL [Suspect]
     Dosage: 80 MG, 1X/DAY
     Route: 041
     Dates: start: 20110531, end: 20110531
  9. FLUOROURACIL [Concomitant]
     Indication: COLORECTAL CANCER
     Dosage: 500 MG/BODY (328.9 MG/M2)
     Route: 040
     Dates: start: 20110209, end: 20110209
  10. FLUOROURACIL [Concomitant]
     Dosage: 2500 MG/BODY/D1-2, (1644.7 MG/M2/D1-2)
     Route: 041
     Dates: start: 20110309, end: 20110309
  11. IRINOTECAN HCL [Suspect]
     Dosage: 80 MG, 1X/DAY
     Route: 041
     Dates: start: 20110309, end: 20110309
  12. FLUOROURACIL [Concomitant]
     Dosage: 500 MG/BODY (328.9 MG/M2)
     Route: 040
     Dates: start: 20110323, end: 20110531
  13. FLUOROURACIL [Concomitant]
     Dosage: 3000 MG/BODY/D1-2, (1973.7 MG/M2/D1-2)
     Route: 041
     Dates: start: 20110209, end: 20110209
  14. FLUOROURACIL [Concomitant]
     Dosage: 500 MG/BODY (328.9 MG/M2)
     Route: 040
     Dates: start: 20110309, end: 20110309
  15. CEFOTIAM HYDROCHLORIDE [Concomitant]
     Dosage: UNK
     Dates: start: 20110608, end: 20110612
  16. IRINOTECAN HCL [Suspect]
     Indication: COLORECTAL CANCER
     Dosage: 160 MG, 1X/DAY
     Route: 041
     Dates: start: 20110209, end: 20110209
  17. UNASYN [Concomitant]
     Dosage: UNK
     Dates: start: 20110518, end: 20110524
  18. IRINOTECAN HCL [Suspect]
     Dosage: 80 MG, 1X/DAY
     Route: 041
     Dates: start: 20110323, end: 20110323
  19. AVASTIN [Suspect]
     Indication: COLORECTAL CANCER
     Dosage: 250 MG, 1X/DAY
     Route: 041
     Dates: start: 20110209, end: 20110209
  20. AVASTIN [Suspect]
     Dosage: 250 MG, 1X/DAY
     Route: 041
     Dates: start: 20110309, end: 20110309
  21. CALCIUM LEVOFOLINATE [Concomitant]
     Indication: COLORECTAL CANCER
     Dosage: 300 MG/BODY (197.4 MG/M2)
     Route: 041
     Dates: start: 20110209, end: 20110531

REACTIONS (2)
  - COLONIC FISTULA [None]
  - INFECTION [None]
